FAERS Safety Report 6836495-3 (Version None)
Quarter: 2010Q3

REPORT INFORMATION
  Report Type: 
  Country: None (occurrence: None)
  Receive Date: 20100713
  Receipt Date: 20100707
  Transmission Date: 20110219
  Serious: Yes (Hospitalization, Other)
  Sender: FDA-Public Use
  Company Number: AU-NAPPMUNDI-DEU-2010-0006165

PATIENT
  Sex: Female

DRUGS (7)
  1. NALOXONE PR TABLET [Suspect]
     Indication: PAIN
     Dosage: 48 MG, DAILY
     Dates: start: 20100301
  2. NALOXONE PR TABLET [Suspect]
     Indication: CONSTIPATION
  3. HYDROMORPHONE HCL [Suspect]
     Indication: PAIN
     Dosage: 48 MG, UNK
     Dates: start: 20100220
  4. HYDROMORPHONE HCL [Suspect]
     Indication: CONSTIPATION
     Dosage: 40 MG, DAILY
     Dates: start: 20100219, end: 20100219
  5. HYDROMORPHONE HCL [Suspect]
     Dosage: 32 MG, UNK
     Dates: start: 20100217, end: 20100218
  6. HYDROMORPHONE HCL [Suspect]
     Dosage: 28 MG, DAILY
     Dates: start: 20100216, end: 20100216
  7. HYDROMORPHONE HCL [Suspect]
     Dosage: 24 MG, DAILY
     Dates: start: 20100202, end: 20100215

REACTIONS (1)
  - DRUG WITHDRAWAL SYNDROME [None]
